FAERS Safety Report 6530069-X (Version None)
Quarter: 2009Q4

REPORT INFORMATION
  Report Type: 
  Country: None (occurrence: None)
  Receive Date: 20091231
  Receipt Date: 20091228
  Transmission Date: 20100525
  Serious: Yes (Other)
  Sender: FDA-Public Use
  Company Number: GB-EBEWE-2001MTX09

PATIENT
  Age: 48 Year
  Sex: Female

DRUGS (1)
  1. METHOTREXATE [Suspect]
     Indication: RHEUMATOID ARTHRITIS
     Dosage: SEVERAL YEARS

REACTIONS (2)
  - MALIGNANT PERITONEAL NEOPLASM [None]
  - MALIGNANT TRANSFORMATION [None]
